FAERS Safety Report 19365852 (Version 1)
Quarter: 2021Q2

REPORT INFORMATION
  Report Type: Report from Study
  Country: CA (occurrence: CA)
  Receive Date: 20210602
  Receipt Date: 20210602
  Transmission Date: 20210717
  Serious: Yes (Hospitalization, Other)
  Sender: FDA-Public Use
  Company Number: CA-TAKEDA-2021TUS026305

PATIENT
  Age: 74 Year
  Sex: Male

DRUGS (5)
  1. CUVITRU [Suspect]
     Active Substance: HUMAN IMMUNOGLOBULIN G
     Dosage: 3 GRAM 1/WEEK
     Route: 065
     Dates: start: 20210322
  2. IVIG [Concomitant]
     Active Substance: HUMAN IMMUNOGLOBULIN G
     Indication: PRODUCT USED FOR UNKNOWN INDICATION
     Dosage: UNK
     Route: 065
     Dates: start: 2018, end: 20210301
  3. ONDANSETRON [Concomitant]
     Active Substance: ONDANSETRON
     Indication: PRODUCT USED FOR UNKNOWN INDICATION
     Dosage: 8 GRAM
     Route: 065
     Dates: start: 20210518
  4. CUVITRU [Suspect]
     Active Substance: HUMAN IMMUNOGLOBULIN G
     Dosage: 3 GRAM, 1/WEEK
     Route: 058
     Dates: start: 20210322
  5. CUVITRU [Suspect]
     Active Substance: HUMAN IMMUNOGLOBULIN G
     Indication: SECONDARY IMMUNODEFICIENCY
     Dosage: 3 GRAM, 1/WEEK
     Route: 058
     Dates: start: 20210322

REACTIONS (8)
  - Renal impairment [Recovered/Resolved with Sequelae]
  - Injection site swelling [Recovered/Resolved]
  - Haematemesis [Recovered/Resolved with Sequelae]
  - Discoloured vomit [Recovered/Resolved with Sequelae]
  - Lack of injection site rotation [Unknown]
  - Medication error [Unknown]
  - Dehydration [Recovered/Resolved with Sequelae]
  - Injection site erythema [Recovered/Resolved]

NARRATIVE: CASE EVENT DATE: 202104
